FAERS Safety Report 6037635-9 (Version None)
Quarter: 2009Q1

REPORT INFORMATION
  Report Type: 
  Country: None (occurrence: None)
  Receive Date: 20090114
  Receipt Date: 20090112
  Transmission Date: 20090719
  Serious: No
  Sender: FDA-Public Use
  Company Number: US-B.I. PHARMACEUTICALS,INC./RIDGEFIELD-2009-BP-00393BP

PATIENT
  Sex: Female

DRUGS (3)
  1. SPIRIVA [Suspect]
     Indication: BRONCHITIS CHRONIC
     Dosage: 18MCG
     Route: 055
     Dates: start: 20090105
  2. BIAXIN [Suspect]
     Indication: BRONCHITIS CHRONIC
     Dosage: 1000MG
     Route: 048
     Dates: start: 20090105
  3. PROVENTIL [Concomitant]
     Indication: BRONCHITIS CHRONIC
     Dosage: 8PUF
     Route: 055
     Dates: start: 20071229

REACTIONS (1)
  - TINNITUS [None]
